FAERS Safety Report 7865401-8 (Version None)
Quarter: 2011Q4

REPORT INFORMATION
  Report Type: 
  Country: None (occurrence: None)
  Receive Date: 20111028
  Receipt Date: 20101214
  Transmission Date: 20120403
  Serious: No
  Sender: FDA-Public Use
  Company Number: US-GLAXOSMITHKLINE-A0899716A

PATIENT
  Age: 78 Year
  Sex: Female

DRUGS (5)
  1. METFORMIN HCL [Concomitant]
  2. ATENOLOL [Concomitant]
  3. AMLODIPINE [Concomitant]
  4. FUROSEMIDE [Concomitant]
  5. ADVAIR DISKUS 100/50 [Suspect]
     Indication: COUGH
     Dosage: 1PUFF AS REQUIRED
     Route: 055

REACTIONS (4)
  - TREATMENT NONCOMPLIANCE [None]
  - PRODUCT QUALITY ISSUE [None]
  - DYSPNOEA [None]
  - DRUG INEFFECTIVE [None]
